FAERS Safety Report 5393798-X (Version None)
Quarter: 2007Q3

REPORT INFORMATION
  Report Type: 
  Country: None (occurrence: None)
  Receive Date: 20070720
  Receipt Date: 20070720
  Transmission Date: 20080115
  Serious: Yes (Other)
  Sender: FDA-Public Use
  Company Number: None

PATIENT
  Age: 64 Year
  Sex: Female
  Weight: 72 kg

DRUGS (1)
  1. TAMOXIFEN CITRATE [Suspect]
     Indication: BREAST CANCER
     Dosage: 20 MG 1 TIMER PR. 1. DAY
     Dates: start: 20040101, end: 20060629

REACTIONS (4)
  - ALOPECIA [None]
  - CONSTIPATION [None]
  - HEPATITIS A [None]
  - HEPATOTOXICITY [None]
